FAERS Safety Report 9307724 (Version 1)
Quarter: 2013Q2

REPORT INFORMATION
  Report Type: Spontaneous
  Country: IL (occurrence: IL)
  Receive Date: 20130524
  Receipt Date: 20130524
  Transmission Date: 20140414
  Serious: Yes (Death, Hospitalization)
  Sender: FDA-Public Use
  Company Number: IL-GENZYME-POMP-1003010

PATIENT
  Sex: Female

DRUGS (1)
  1. MYOZYME [Suspect]
     Indication: GLYCOGEN STORAGE DISEASE TYPE II
     Dosage: 20 MG/DL, Q2W
     Route: 042
     Dates: end: 201304

REACTIONS (3)
  - Respiratory failure [Fatal]
  - Hypercapnia [Fatal]
  - Diarrhoea [Fatal]
